FAERS Safety Report 9364120 (Version 1)
Quarter: 2013Q2

REPORT INFORMATION
  Report Type: Spontaneous
  Country: FR (occurrence: FR)
  Receive Date: 20130624
  Receipt Date: 20130624
  Transmission Date: 20140414
  Serious: Yes (Hospitalization)
  Sender: FDA-Public Use
  Company Number: FR-BAYER-2013-076598

PATIENT
  Age: 82 Year
  Sex: Female

DRUGS (8)
  1. IZILOX [Suspect]
     Indication: LUNG DISORDER
     Dosage: UNK
     Route: 048
     Dates: end: 20130104
  2. PREVISCAN [Suspect]
     Dosage: UNK
     Route: 048
     Dates: end: 20130104
  3. PYOSTACINE [Suspect]
     Indication: LUNG DISORDER
     Dosage: UNK
     Route: 048
     Dates: end: 20130104
  4. FLUVASTATIN [Concomitant]
  5. ATENOLOL [Concomitant]
  6. MICARDIS [Concomitant]
  7. METFORMINE [Concomitant]
  8. HEMIGOXINE NATIVELLE [Concomitant]

REACTIONS (2)
  - Breast haematoma [Recovered/Resolved]
  - Muscle haemorrhage [Recovered/Resolved]
